FAERS Safety Report 11740209 (Version 2)
Quarter: 2015Q4

REPORT INFORMATION
  Report Type: Spontaneous
  Country: US (occurrence: US)
  Receive Date: 20151110
  Receipt Date: 20151120
  Transmission Date: 20160304
  Serious: No
  Sender: FDA-Public Use
  Company Number: US-ELI_LILLY_AND_COMPANY-US201206000204

PATIENT
  Age: 79 Year
  Sex: Female

DRUGS (5)
  1. FORTEO [Suspect]
     Active Substance: TERIPARATIDE
     Dosage: 20 UG, QD
     Route: 065
     Dates: end: 20121108
  2. FORTEO [Suspect]
     Active Substance: TERIPARATIDE
     Indication: OSTEOPOROSIS
     Dosage: 20 UG, QD
     Route: 065
     Dates: start: 20120516
  3. FORTEO [Suspect]
     Active Substance: TERIPARATIDE
     Dosage: 20 UG, QD
     Route: 065
     Dates: start: 20121112, end: 20121208
  4. FORTEO [Suspect]
     Active Substance: TERIPARATIDE
     Dosage: 20 UG, QD
     Route: 065
  5. FORTEO [Suspect]
     Active Substance: TERIPARATIDE
     Dosage: 20 UG, QD
     Route: 065

REACTIONS (15)
  - Fatigue [Unknown]
  - Feeling abnormal [Unknown]
  - Adverse event [Unknown]
  - Tremor [Unknown]
  - Injection site pain [Not Recovered/Not Resolved]
  - Sciatic nerve neuropathy [Unknown]
  - Dizziness [Unknown]
  - Nausea [Unknown]
  - Underdose [Unknown]
  - Injection site bruising [Unknown]
  - Blood cholesterol increased [Not Recovered/Not Resolved]
  - Pain in extremity [Unknown]
  - Blood calcium increased [Unknown]
  - Nervous system disorder [Unknown]
  - Blood pressure increased [Unknown]

NARRATIVE: CASE EVENT DATE: 20120612
